FAERS Safety Report 8827015 (Version 2)
Quarter: 2012Q4

REPORT INFORMATION
  Report Type: 
  Country: RO (occurrence: RO)
  Receive Date: 20121005
  Receipt Date: 20121017
  Transmission Date: 20130627
  Serious: Yes (Hospitalization)
  Sender: FDA-Public Use
  Company Number: RO-ABBOTT-12P-135-0991097-00

PATIENT
  Age: 9 Year
  Sex: Male

DRUGS (2)
  1. VALPROATE SODIUM [Suspect]
     Indication: EPILEPSY
  2. LAMOTRIGINE [Interacting]
     Indication: EPILEPSY

REACTIONS (30)
  - Stevens-Johnson syndrome [Unknown]
  - Drug interaction [Unknown]
  - Pyrexia [Unknown]
  - Pruritus [Unknown]
  - Pain [Unknown]
  - Cough [Unknown]
  - Decreased appetite [Unknown]
  - Dysphagia [Unknown]
  - Conjunctival hyperaemia [Unknown]
  - Skin warm [Unknown]
  - Rash [Unknown]
  - Salivary hypersecretion [Unknown]
  - Lip dry [Unknown]
  - Chapped lips [Unknown]
  - Oral disorder [Unknown]
  - Ulcer [Unknown]
  - Leukocytosis [Unknown]
  - Red blood cell sedimentation rate increased [Unknown]
  - C-reactive protein increased [Unknown]
  - Malaise [Unknown]
  - Headache [Unknown]
  - Erythema [Unknown]
  - Tonsillitis [Unknown]
  - Adenoiditis [Unknown]
  - Lymphadenopathy [Unknown]
  - Hepatosplenomegaly [Unknown]
  - Aspartate aminotransferase increased [Unknown]
  - Alanine aminotransferase increased [Unknown]
  - Pneumonia [Unknown]
  - Angina pectoris [Unknown]
